FAERS Safety Report 12906884 (Version 2)
Quarter: 2017Q1

REPORT INFORMATION
  Report Type: Spontaneous
  Country: FR (occurrence: FR)
  Receive Date: 20161103
  Receipt Date: 20170103
  Transmission Date: 20170428
  Serious: Yes (Hospitalization)
  Sender: FDA-Public Use
  Company Number: FR-PFIZER INC-2016493047

PATIENT
  Age: 77 Year
  Sex: Male

DRUGS (17)
  1. IXPRIM [Concomitant]
     Active Substance: ACETAMINOPHEN\TRAMADOL HYDROCHLORIDE
     Dosage: UNK
     Route: 048
  2. SEVIKAR [Concomitant]
     Active Substance: AMLODIPINE BESYLATE\OLMESARTAN MEDOXOMIL
     Indication: HYPERTENSION
     Dosage: 1 DF, 1X/DAY
     Route: 048
     Dates: end: 20151026
  3. ALDACTAZINE [Concomitant]
     Active Substance: ALTHIAZIDE\SPIRONOLACTONE
     Indication: HYPERTENSION
     Dosage: 1 DF, 1X/DAY
     Route: 048
     Dates: end: 20151026
  4. AVODART [Concomitant]
     Active Substance: DUTASTERIDE
     Dosage: 1 DF, 1X/DAY
     Route: 048
  5. KARDEGIC [Concomitant]
     Active Substance: ASPIRIN LYSINE
     Dosage: 1 DF, 1X/DAY
     Route: 048
  6. DIFRAREL /00322801/ [Concomitant]
     Dosage: UNK
     Route: 048
  7. VOLTARENE [Concomitant]
     Active Substance: DICLOFENAC SODIUM
     Dosage: UNK
  8. NORMACOL [Concomitant]
     Active Substance: KARAYA GUM
     Dosage: UNK
  9. ADRIBLASTINE [Suspect]
     Active Substance: DOXORUBICIN
     Indication: THERAPEUTIC EMBOLISATION
     Dosage: 50 MG, SINGLE
     Route: 036
     Dates: start: 20151021, end: 20151021
  10. FEGENOR [Concomitant]
     Active Substance: FENOFIBRATE
     Dosage: 67 MG, 1X/DAY
     Route: 048
  11. GLUCOPHAGE [Concomitant]
     Active Substance: METFORMIN HYDROCHLORIDE
     Indication: TYPE 2 DIABETES MELLITUS
     Dosage: 850 MG, 2X/DAY
     Route: 048
     Dates: end: 20151026
  12. FORLAX [Concomitant]
     Active Substance: POLYETHYLENE GLYCOL 4000
     Dosage: UNK
  13. REFRESH /00880201/ [Concomitant]
     Active Substance: POLYVINYL ALCOHOL\POVIDONE
     Dosage: UNK
  14. SPAGULAX [Concomitant]
     Active Substance: PLANTAGO OVATA SEED
     Dosage: UNK
  15. DIAMICRON [Concomitant]
     Active Substance: GLICLAZIDE
     Dosage: 60 MG, 2X/DAY
     Route: 048
     Dates: end: 20151026
  16. CELLUVISC /00007002/ [Concomitant]
     Dosage: UNK
  17. UVEDOSE [Concomitant]
     Active Substance: CHOLECALCIFEROL
     Dosage: UNK

REACTIONS (1)
  - Post embolisation syndrome [Recovered/Resolved]

NARRATIVE: CASE EVENT DATE: 20151026
